FAERS Safety Report 16582540 (Version 1)
Quarter: 2019Q3

REPORT INFORMATION
  Report Type: Spontaneous
  Country: IT (occurrence: IT)
  Receive Date: 20190717
  Receipt Date: 20190717
  Transmission Date: 20191004
  Serious: Yes (Hospitalization)
  Sender: FDA-Public Use
  Company Number: IT-TEVA-2019-IT-1077888

PATIENT
  Age: 12 Year
  Sex: Female

DRUGS (9)
  1. COLCHICINE. [Suspect]
     Active Substance: COLCHICINE
     Indication: CAPILLARY LEAK SYNDROME
     Dosage: 10 UG/KG DAILY; (0.5 MG/DAY)
     Route: 065
  2. COLCHICINE. [Suspect]
     Active Substance: COLCHICINE
     Indication: ACUTE KIDNEY INJURY
  3. VANCOMYCIN [Suspect]
     Active Substance: VANCOMYCIN
     Route: 065
  4. MYCOPHENOLATE MOFETIL. [Suspect]
     Active Substance: MYCOPHENOLATE MOFETIL
     Indication: ACUTE KIDNEY INJURY
     Route: 065
  5. CYCLOSPORIN [Concomitant]
     Active Substance: CYCLOSPORINE
     Indication: IMMUNOSUPPRESSANT DRUG THERAPY
     Route: 065
  6. ACICLOVIR [Suspect]
     Active Substance: ACYCLOVIR
     Route: 065
  7. PREDNISONE. [Concomitant]
     Active Substance: PREDNISONE
     Indication: IMMUNOSUPPRESSANT DRUG THERAPY
     Route: 065
  8. AMIKACIN. [Suspect]
     Active Substance: AMIKACIN
     Route: 065
  9. METHYLPREDNISOLONE. [Concomitant]
     Active Substance: METHYLPREDNISOLONE
     Indication: ACUTE KIDNEY INJURY
     Dosage: PULSES
     Route: 042

REACTIONS (2)
  - Acute kidney injury [Recovered/Resolved]
  - Leukopenia [Recovered/Resolved]
